FAERS Safety Report 18464319 (Version 1)
Quarter: 2020Q4

REPORT INFORMATION
  Report Type: Spontaneous
  Country: US (occurrence: US)
  Receive Date: 20201104
  Receipt Date: 20201104
  Transmission Date: 20210114
  Serious: No
  Sender: FDA-Public Use
  Company Number: US-JAZZ-2020-US-003064

PATIENT

DRUGS (7)
  1. POSACONAZOLE [Concomitant]
     Active Substance: POSACONAZOLE
  2. FOSCARNET [Concomitant]
     Active Substance: FOSCARNET
     Dosage: UNK
     Route: 042
  3. CYCLOSPORIN [Concomitant]
     Active Substance: CYCLOSPORINE
  4. DEFITELIO [Suspect]
     Active Substance: DEFIBROTIDE SODIUM
     Indication: PROPHYLAXIS
     Dosage: 6.25 MILLIGRAM/KILOGRAM, QID
     Route: 042
     Dates: start: 20200127
  5. PEPCID AC [Concomitant]
     Active Substance: FAMOTIDINE
  6. DEFITELIO [Suspect]
     Active Substance: DEFIBROTIDE SODIUM
     Dosage: 6.25 MILLIGRAM/KILOGRAM, EVERY 8 HOUR
     Route: 042
     Dates: start: 20200225
  7. NORMAL SALINE [Concomitant]
     Active Substance: SODIUM CHLORIDE

REACTIONS (1)
  - Off label use [Unknown]

NARRATIVE: CASE EVENT DATE: 20200127
